FAERS Safety Report 9665435 (Version 5)
Quarter: 2014Q2

REPORT INFORMATION
  Report Type: Report from Study
  Country: RS (occurrence: RS)
  Receive Date: 20131104
  Receipt Date: 20140426
  Transmission Date: 20141212
  Serious: Yes (Hospitalization)
  Sender: FDA-Public Use
  Company Number: RS-ROCHE-1295292

PATIENT
  Age: 59 Year
  Sex: Female
  Weight: 88 kg

DRUGS (4)
  1. FOSINOPRIL [Concomitant]
     Indication: HYPERTENSION
     Route: 065
     Dates: start: 20130809
  2. AMLODIPIN [Concomitant]
     Indication: HYPERTENSION
     Route: 065
     Dates: start: 20130809
  3. HYDROCHLOROTHIAZIDE [Concomitant]
     Indication: HYPERTENSION
     Route: 065
     Dates: start: 20130809
  4. VEMURAFENIB [Suspect]
     Indication: MALIGNANT MELANOMA
     Dosage: DATE OF MOST RECENT DOSE OF BLINDED VEMURAFENIB- 25/OCT/2013, 960 MG
     Route: 048
     Dates: start: 20131018

REACTIONS (1)
  - Pancreatitis acute [Recovered/Resolved]
